FAERS Safety Report 6787917-8 (Version None)
Quarter: 2010Q2

REPORT INFORMATION
  Report Type: 
  Country: None (occurrence: None)
  Receive Date: 20100623
  Receipt Date: 20071013
  Transmission Date: 20101027
  Serious: No
  Sender: FDA-Public Use
  Company Number: US-PFIZER INC-2007072128

PATIENT
  Age: 24 Year
  Sex: Female
  Weight: 58.97 kg

DRUGS (4)
  1. DEPO-PROVERA SUSPENSION/INJ [Suspect]
     Indication: CONTRACEPTION
     Route: 030
     Dates: start: 20070615
  2. METRONIDAZOLE [Concomitant]
  3. PROVENTIL GENTLEHALER [Concomitant]
  4. CELEXA [Concomitant]

REACTIONS (1)
  - ARTHRALGIA [None]
